FAERS Safety Report 9387226 (Version 2)
Quarter: 2013Q3

REPORT INFORMATION
  Report Type: Spontaneous
  Country: UA (occurrence: UA)
  Receive Date: 20130708
  Receipt Date: 20130712
  Transmission Date: 20140515
  Serious: Yes (Death, Life-Threatening, Hospitalization)
  Sender: FDA-Public Use
  Company Number: UA-B.I. PHARMACEUTICALS,INC./RIDGEFIELD-2013-AP-00538AP

PATIENT
  Age: 63 Year
  Sex: Male
  Weight: 78 kg

DRUGS (9)
  1. PRADAXA [Suspect]
     Indication: CEREBROVASCULAR ACCIDENT PROPHYLAXIS
     Dosage: 150 MG
     Route: 048
     Dates: start: 20130628, end: 20130629
  2. PRADAXA [Suspect]
     Indication: ATRIAL FIBRILLATION
  3. BISOPROLOL [Concomitant]
     Indication: ESSENTIAL HYPERTENSION
     Route: 048
  4. LOZAP [Concomitant]
     Indication: ESSENTIAL HYPERTENSION
     Route: 048
  5. SOMAZINA [Concomitant]
     Indication: CEREBROVASCULAR ACCIDENT
     Route: 048
  6. ASCORBIC ACID [Concomitant]
     Dosage: 5%, 2 ML
  7. CEREBROLYSIN [Concomitant]
     Dosage: 10 ML
  8. INOSINE [Concomitant]
     Dosage: 2% 5.0 ML
  9. THEOPHYLLINE [Concomitant]
     Dosage: 2% 5.0 ML

REACTIONS (1)
  - Gastrointestinal haemorrhage [Fatal]
